FAERS Safety Report 6846985-5 (Version None)
Quarter: 2010Q3

REPORT INFORMATION
  Report Type: 
  Country: None (occurrence: None)
  Receive Date: 20100713
  Receipt Date: 20100629
  Transmission Date: 20110219
  Serious: Yes (Other)
  Sender: FDA-Public Use
  Company Number: 2010SCPR001715

PATIENT
  Age: 51 Year
  Sex: Male

DRUGS (12)
  1. RISPERIDONE [Suspect]
     Indication: PSYCHOTIC DISORDER
     Dosage: 2 MG,
  2. TELMISARTAN (TELMISARTAN) UNKNOWN [Suspect]
     Indication: HYPERTENSION
     Dosage: 20 MG, QD,
  3. INSULIN (INSULIN) UNKNOWN [Concomitant]
  4. CANDESARTAN (CANDESARTAN) UNKNOWN [Concomitant]
  5. FELODIPINE (FELODIPINE) UNKNOWN [Concomitant]
  6. FLUVASTATIN (FLUVASTATIN) UNKNOWN [Concomitant]
  7. METFORMIN HCL [Concomitant]
  8. CLONAZEPAM [Concomitant]
  9. BROMAZEPAM (BROMAZEPAM) UNKNOWN [Concomitant]
  10. LEVOMEPROMAZINE (LEVOMEPROMAZINE) UNKNOWN [Concomitant]
  11. VALPROATE SODIUM (VALPROATE SODIUM) UNKNOWN [Concomitant]
  12. PIPERIDINE (PIPERIDINE) UNKNOWN [Concomitant]

REACTIONS (6)
  - BLOOD GLUCOSE INCREASED [None]
  - BLOOD PROLACTIN INCREASED [None]
  - DIABETIC NEUROPATHY [None]
  - DRUG INTERACTION [None]
  - METABOLIC DISORDER [None]
  - WEIGHT DECREASED [None]
